FAERS Safety Report 16296863 (Version 2)
Quarter: 2019Q3

REPORT INFORMATION
  Report Type: Spontaneous
  Country: US (occurrence: US)
  Receive Date: 20190510
  Receipt Date: 20190801
  Transmission Date: 20191004
  Serious: No
  Sender: FDA-Public Use
  Company Number: US-GLAXOSMITHKLINE-US2019AMR078835

PATIENT
  Sex: Female
  Weight: 71.2 kg

DRUGS (1)
  1. ADVAIR DISKUS [Suspect]
     Active Substance: FLUTICASONE PROPIONATE\SALMETEROL XINAFOATE
     Indication: WHEEZING
     Dosage: UNK UNK, 1D
     Route: 065
     Dates: start: 2012, end: 2012

REACTIONS (2)
  - Dysphonia [Recovered/Resolved]
  - Off label use [Unknown]
